FAERS Safety Report 9665573 (Version 1)
Quarter: 2013Q4

REPORT INFORMATION
  Report Type: Spontaneous
  Country: FR (occurrence: FR)
  Receive Date: 20131104
  Receipt Date: 20131104
  Transmission Date: 20140711
  Serious: Yes (Hospitalization)
  Sender: FDA-Public Use
  Company Number: FR-JNJFOC-20131018917

PATIENT
  Age: 93 Year
  Sex: Female

DRUGS (4)
  1. XARELTO [Suspect]
     Indication: PRODUCT USED FOR UNKNOWN INDICATION
     Route: 048
     Dates: end: 201309
  2. AMLOR [Concomitant]
     Route: 065
  3. SPIRONOLACTONE [Concomitant]
     Route: 065
  4. SOTALOL [Concomitant]
     Dosage: .5 TAB
     Route: 065

REACTIONS (3)
  - Infarction [Recovered/Resolved with Sequelae]
  - Dysarthria [Recovered/Resolved]
  - Hemiparesis [Recovered/Resolved with Sequelae]
